FAERS Safety Report 9649767 (Version 1)
Quarter: 2013Q4

REPORT INFORMATION
  Report Type: Spontaneous
  Country: US (occurrence: US)
  Receive Date: 20131028
  Receipt Date: 20131028
  Transmission Date: 20140711
  Serious: No
  Sender: FDA-Public Use
  Company Number: US-PURDUE-USA-2012-0095466

PATIENT
  Age: 60 Year
  Sex: Male

DRUGS (3)
  1. OXYCODONE HCL IR CAPSULES [Suspect]
     Indication: PAIN
     Route: 048
  2. DURAGESIC                          /00174601/ [Concomitant]
     Indication: PAIN
  3. PERCOCET                           /00867901/ [Concomitant]
     Indication: PAIN

REACTIONS (2)
  - Dyspnoea [Unknown]
  - Anxiety [Unknown]
